FAERS Safety Report 7285579-7 (Version None)
Quarter: 2011Q1

REPORT INFORMATION
  Report Type: 
  Country: None (occurrence: None)
  Receive Date: 20110210
  Receipt Date: 20110207
  Transmission Date: 20110831
  Serious: Yes (Hospitalization)
  Sender: FDA-Public Use
  Company Number: A0775509A

PATIENT
  Age: 66 Year
  Sex: Male
  Weight: 68.2 kg

DRUGS (10)
  1. INSULIN [Concomitant]
  2. GLUCOTROL XL [Concomitant]
  3. ZOCOR [Concomitant]
  4. PRANDIN [Concomitant]
  5. BAYCOL [Concomitant]
     Dates: start: 19990101, end: 20000101
  6. METFORMIN [Concomitant]
  7. COREG [Concomitant]
     Dates: start: 20040101
  8. LOPRESSOR [Concomitant]
     Dates: start: 20040101
  9. AVANDIA [Suspect]
     Indication: DIABETES MELLITUS
     Dosage: 4MG PER DAY
     Route: 048
     Dates: start: 19990706, end: 20070401
  10. SPECTAZOLE [Concomitant]

REACTIONS (1)
  - MYOCARDIAL INFARCTION [None]
